FAERS Safety Report 9705746 (Version 1)
Quarter: 2013Q4

REPORT INFORMATION
  Report Type: Spontaneous
  Country: US (occurrence: US)
  Receive Date: 20131122
  Receipt Date: 20131122
  Transmission Date: 20140711
  Serious: No
  Sender: FDA-Public Use
  Company Number: US-GILEAD-2008-0017939

PATIENT
  Age: 59 Year
  Sex: Female

DRUGS (14)
  1. LETAIRIS [Suspect]
     Indication: PULMONARY ARTERIAL HYPERTENSION
     Route: 048
     Dates: start: 20080716
  2. REVATIO [Concomitant]
  3. SYMBICORT [Concomitant]
  4. CRESTOR [Concomitant]
  5. INSULIN [Concomitant]
  6. NORTRIPTYLINE [Concomitant]
  7. PROTONIX [Concomitant]
  8. DIOVAN [Concomitant]
  9. WELLBUTRIN [Concomitant]
  10. LASIX [Concomitant]
  11. SOMA [Concomitant]
  12. SYNTHROID [Concomitant]
  13. POTASSIUM [Concomitant]
  14. FOLIC ACID [Concomitant]

REACTIONS (2)
  - Dizziness [None]
  - Unevaluable event [None]
